FAERS Safety Report 20461674 (Version 1)
Quarter: 2022Q1

REPORT INFORMATION
  Report Type: Other
  Country: BR (occurrence: None)
  Receive Date: 20220211
  Receipt Date: 20220211
  Transmission Date: 20220423
  Serious: Yes (Hospitalization)
  Sender: FDA-Public Use
  Company Number: BR-ROCHE-2755914

PATIENT
  Sex: Female
  Weight: 82 kg

DRUGS (4)
  1. OCREVUS [Suspect]
     Active Substance: OCRELIZUMAB
     Indication: Multiple sclerosis
     Dosage: ON 24/MAR/2020, SECOND DOSE OF 300 MG?SUBSEQUENT DOSE: 27/JAN/2021
     Route: 065
     Dates: start: 20200310
  2. ALPRAZOLAM [Concomitant]
     Active Substance: ALPRAZOLAM
  3. OMEPRAZOLE [Concomitant]
     Active Substance: OMEPRAZOLE
  4. CIPROFLOXACIN HYDROCHLORIDE [Concomitant]
     Active Substance: CIPROFLOXACIN HYDROCHLORIDE
     Indication: Urinary tract infection
     Dates: start: 202102, end: 202102

REACTIONS (7)
  - Peripheral swelling [Not Recovered/Not Resolved]
  - Feeling abnormal [Unknown]
  - Muscle spasms [Unknown]
  - Muscle contractions involuntary [Unknown]
  - Fluid retention [Unknown]
  - Urinary tract infection [Recovered/Resolved]
  - Influenza [Unknown]
